FAERS Safety Report 9898871 (Version 6)
Quarter: 2016Q2

REPORT INFORMATION
  Report Type: Report from Study
  Country: CA (occurrence: CA)
  Receive Date: 20140214
  Receipt Date: 20160419
  Transmission Date: 20160815
  Serious: Yes (Hospitalization, Other)
  Sender: FDA-Public Use
  Company Number: CA-ABBVIE-14P-028-1187525-00

PATIENT
  Sex: Male

DRUGS (3)
  1. METHOTREXATE [Concomitant]
     Active Substance: METHOTREXATE
     Indication: PRODUCT USED FOR UNKNOWN INDICATION
  2. HUMIRA [Suspect]
     Active Substance: ADALIMUMAB
     Indication: CROHN^S DISEASE
     Route: 058
     Dates: start: 20090801, end: 20131228
  3. HUMIRA [Suspect]
     Active Substance: ADALIMUMAB
     Route: 065
     Dates: start: 20141011, end: 20160211

REACTIONS (13)
  - Intestinal perforation [Unknown]
  - Vitamin D deficiency [Not Recovered/Not Resolved]
  - Unevaluable event [Unknown]
  - Infected fistula [Unknown]
  - Crohn^s disease [Not Recovered/Not Resolved]
  - Pain [Unknown]
  - Abscess [Unknown]
  - Gastric mucosal lesion [Not Recovered/Not Resolved]
  - Abdominal hernia [Recovered/Resolved]
  - Knee operation [Unknown]
  - Iron deficiency [Not Recovered/Not Resolved]
  - Arthritis enteropathic [Not Recovered/Not Resolved]
  - Malaise [Unknown]
